FAERS Safety Report 9778504 (Version 1)
Quarter: 2013Q4

REPORT INFORMATION
  Report Type: Spontaneous
  Country: US (occurrence: None)
  Receive Date: 20131219
  Receipt Date: 20131219
  Transmission Date: 20140711
  Serious: Yes (Hospitalization)
  Sender: FDA-Public Use
  Company Number: 2013AP010535

PATIENT
  Age: 10 Year
  Sex: Male

DRUGS (1)
  1. ZOLPIDEM TARTRATE TABLETS [Suspect]
     Dosage: 17 KKQ2
     Route: 048

REACTIONS (10)
  - Depressed level of consciousness [None]
  - Overdose [None]
  - Vomiting [None]
  - Sedation [None]
  - Miosis [None]
  - Nystagmus [None]
  - Somnolence [None]
  - Snoring [None]
  - Blood pressure decreased [None]
  - Wrong patient received medication [None]
